FAERS Safety Report 6336831-0 (Version None)
Quarter: 2009Q3

REPORT INFORMATION
  Report Type: 
  Country: None (occurrence: None)
  Receive Date: 20090828
  Receipt Date: 20090828
  Transmission Date: 20100115
  Serious: Yes (Hospitalization, Other)
  Sender: FDA-Public Use
  Company Number: None

PATIENT
  Age: 37 Year
  Sex: Male
  Weight: 80.7403 kg

DRUGS (2)
  1. QUINACRINE [Suspect]
     Indication: GIARDIASIS
     Dosage: 100 MG THREE TIMES DAILY PO
     Route: 048
     Dates: start: 20090427, end: 20090525
  2. METRONIDAZOLE [Concomitant]

REACTIONS (1)
  - MANIA [None]
